FAERS Safety Report 5018046-1 (Version None)
Quarter: 2006Q2

REPORT INFORMATION
  Report Type: 
  Country: None (occurrence: None)
  Receive Date: 20060605
  Receipt Date: 20060331
  Transmission Date: 20061013
  Serious: Yes (Hospitalization)
  Sender: FDA-Public Use
  Company Number: CL-BRISTOL-MYERS SQUIBB COMPANY-13333273

PATIENT
  Age: 66 Year
  Sex: Male

DRUGS (8)
  1. CISPLATIN [Suspect]
     Indication: GASTRIC CANCER
     Route: 042
     Dates: start: 20060301, end: 20060301
  2. FLUOROURACIL [Suspect]
     Indication: GASTRIC CANCER
     Route: 042
     Dates: start: 20060301, end: 20060306
  3. DOMPERIDONE [Suspect]
     Indication: ANTIEMETIC SUPPORTIVE CARE
     Route: 048
     Dates: start: 20051215, end: 20060406
  4. PARACETAMOL [Concomitant]
     Indication: DYSPHAGIA
     Route: 048
     Dates: start: 20060222
  5. CLONAZEPAM [Concomitant]
     Indication: ANXIETY
     Route: 048
     Dates: start: 20051215
  6. POTASSIUM [Concomitant]
     Indication: HYPOKALAEMIA
  7. KETOROLAC [Concomitant]
     Indication: DYSPHAGIA
     Route: 048
     Dates: start: 20060222
  8. LOPERAMIDE [Concomitant]
     Route: 048
     Dates: start: 20060405

REACTIONS (2)
  - DIARRHOEA [None]
  - MUCOSAL INFLAMMATION [None]
